FAERS Safety Report 8870179 (Version 2)
Quarter: 2013Q1

REPORT INFORMATION
  Report Type: Spontaneous
  Country: US (occurrence: None)
  Receive Date: 20121024
  Receipt Date: 20130207
  Transmission Date: 20140127
  Serious: Yes (Death, Hospitalization)
  Sender: FDA-Public Use
  Company Number: ACO_32491_2012

PATIENT
  Age: 71 Year
  Sex: Female
  Weight: 43.5 kg

DRUGS (12)
  1. AMPYRA [Suspect]
     Indication: PRODUCT USED FOR UNKNOWN INDICATION
     Dates: start: 20120117, end: 20120923
  2. ARICEPT (DONEPEZIL HYDROCHLORIDE) [Concomitant]
  3. CELEXA (CITALOPRAM HYDROBROMIDE) [Concomitant]
  4. BACLOFEN [Concomitant]
  5. NAMENDA (MEMANTINE HYDROCHLORIDE) [Concomitant]
  6. ADVAIR (FLUTICASONE PROPIONATE, SALMETEROL XINAFOATE) [Concomitant]
  7. ALBUTEROL (SALBUTAMOL SULFATE) [Concomitant]
  8. BONIVA (IBANDRONATE SODIUM) [Concomitant]
  9. DILTIAZEM (DILTIAZEM HYDROCHLORIDE) [Concomitant]
  10. SENOKOT (SENNA ALEXANDRINA) [Concomitant]
  11. SPIRIVA (TIOTROPIUM BROMIDE) [Concomitant]
  12. VITAMIN D (ERGOCALCIFEROL) [Concomitant]

REACTIONS (2)
  - Colon cancer [None]
  - Anaemia [None]
